FAERS Safety Report 20143586 (Version 1)
Quarter: 2021Q4

REPORT INFORMATION
  Report Type: Spontaneous
  Country: CN (occurrence: CN)
  Receive Date: 20211203
  Receipt Date: 20211203
  Transmission Date: 20220303
  Serious: Yes (Other)
  Sender: FDA-Public Use
  Company Number: None

PATIENT
  Age: 64 Year
  Sex: Female
  Weight: 58 kg

DRUGS (1)
  1. RYZODEG 70/30 [Suspect]
     Active Substance: INSULIN ASPART\INSULIN DEGLUDEC
     Indication: Type 2 diabetes mellitus
     Dosage: 14 IU, QD
     Route: 058
     Dates: start: 20211119, end: 20211119

REACTIONS (3)
  - Rash [Recovering/Resolving]
  - Eyelid oedema [Recovering/Resolving]
  - Lip oedema [Recovering/Resolving]

NARRATIVE: CASE EVENT DATE: 20211119
